FAERS Safety Report 19203539 (Version 3)
Quarter: 2021Q3

REPORT INFORMATION
  Report Type: Spontaneous
  Country: AT (occurrence: AT)
  Receive Date: 20210430
  Receipt Date: 20210927
  Transmission Date: 20211014
  Serious: Yes (Hospitalization, Other)
  Sender: FDA-Public Use
  Company Number: AT-ELI_LILLY_AND_COMPANY-AT202104008798

PATIENT
  Age: 77 Year
  Sex: Female

DRUGS (3)
  1. SELPERCATINIB. [Suspect]
     Active Substance: SELPERCATINIB
     Dosage: 40 MG, BID
     Route: 065
  2. MODERNA COVID?19 VACCINE [Suspect]
     Active Substance: CX-024414
     Indication: COVID-19 PROPHYLAXIS
     Route: 065
  3. SELPERCATINIB. [Suspect]
     Active Substance: SELPERCATINIB
     Indication: NON-SMALL CELL LUNG CANCER
     Dosage: 160 MG, BID
     Route: 065
     Dates: start: 20210319

REACTIONS (10)
  - Blood creatine phosphokinase increased [Unknown]
  - Hypersensitivity [Unknown]
  - Pulmonary embolism [Unknown]
  - Renal function test abnormal [Unknown]
  - Serum ferritin increased [Unknown]
  - Leukopenia [Recovered/Resolved]
  - Liver function test increased [Recovered/Resolved]
  - Pain in extremity [Unknown]
  - Thrombocytopenia [Recovered/Resolved]
  - Myalgia [Unknown]
